FAERS Safety Report 8843821 (Version 1)
Quarter: 2012Q4

REPORT INFORMATION
  Report Type: 
  Country: US (occurrence: US)
  Receive Date: 20121016
  Receipt Date: 20121016
  Transmission Date: 20130627
  Serious: Yes (Other)
  Sender: FDA-Public Use
  Company Number: US-PFIZER INC-HQWYE582728JUL05

PATIENT
  Age: 68 Year
  Sex: Female
  Weight: 56.7 kg

DRUGS (3)
  1. PREMARIN [Suspect]
  2. PROVERA [Suspect]
  3. MEDROXYPROGESTERONE [Suspect]

REACTIONS (1)
  - Invasive ductal breast carcinoma [Unknown]
